FAERS Safety Report 5208203-3 (Version None)
Quarter: 2007Q1

REPORT INFORMATION
  Report Type: 
  Country: None (occurrence: None)
  Receive Date: 20070115
  Receipt Date: 20070105
  Transmission Date: 20070707
  Serious: Yes (Other)
  Sender: FDA-Public Use
  Company Number: FR-GLAXOSMITHKLINE-B0453552A

PATIENT
  Age: 69 Year
  Sex: Female

DRUGS (5)
  1. REQUIP [Suspect]
     Indication: PARKINSON'S DISEASE
     Dosage: 12MG PER DAY
     Route: 048
  2. MODOPAR [Concomitant]
     Indication: PARKINSON'S DISEASE
     Dosage: 187.5MG PER DAY
     Route: 048
  3. XALATAN [Concomitant]
     Indication: GLAUCOMA
     Dosage: 1DROP PER DAY
     Route: 047
  4. TEMESTA [Concomitant]
     Indication: SLEEP DISORDER
     Route: 065
  5. ZOPICLONE [Concomitant]
     Indication: SLEEP DISORDER
     Route: 065

REACTIONS (5)
  - CATARACT [None]
  - EYE PAIN [None]
  - POSTERIOR CAPSULE OPACIFICATION [None]
  - TREMOR [None]
  - VISUAL ACUITY REDUCED [None]
